FAERS Safety Report 24036716 (Version 1)
Quarter: 2024Q3

REPORT INFORMATION
  Report Type: Spontaneous
  Country: NO (occurrence: NO)
  Receive Date: 20240701
  Receipt Date: 20240701
  Transmission Date: 20241017
  Serious: Yes (Other)
  Sender: ELI LILLY AND CO
  Company Number: NO-Merck KGaA-7193127

PATIENT
  Age: 63 Year
  Sex: Male

DRUGS (3)
  1. ERBITUX [Suspect]
     Active Substance: CETUXIMAB
     Indication: Neuralgia
     Dosage: UNK, WEEKLY (1/W)
     Route: 042
  2. PANITUMUMAB [Suspect]
     Active Substance: PANITUMUMAB
     Indication: Neuralgia
     Dosage: 6 MG/KG, UNK
     Route: 042
  3. PREGABALIN [Concomitant]
     Active Substance: PREGABALIN
     Indication: Neuralgia
     Dosage: 75 MG, UNK
     Route: 065

REACTIONS (6)
  - Uveitis [Recovered/Resolved]
  - Iridocyclitis [Recovered/Resolved]
  - Neuralgia [Recovered/Resolved]
  - Off label use [Unknown]
  - Dry skin [Unknown]
  - Dermatitis acneiform [Recovering/Resolving]
